FAERS Safety Report 6103197-0 (Version None)
Quarter: 2009Q1

REPORT INFORMATION
  Report Type: 
  Country: None (occurrence: None)
  Receive Date: 20090227
  Receipt Date: 20090224
  Transmission Date: 20090719
  Serious: Yes (Hospitalization)
  Sender: FDA-Public Use
  Company Number: 107#03#2009-00766

PATIENT
  Age: 77 Year
  Sex: Female

DRUGS (6)
  1. REWODINA (TABLETS) (DICLOFENAC SODIUM) [Suspect]
     Indication: PAIN
     Dosage: 50 MG TWICE DAILY, ORAL
     Route: 048
     Dates: start: 20080731, end: 20080731
  2. ACETYLSALICYLIC ACID(TABLETS) (ACETYLSALICYLIC ACID) [Suspect]
     Indication: AMAUROSIS
     Dosage: 100 MG, ORAL
     Route: 048
     Dates: end: 20080804
  3. ALLOPURINOL (TABLETS) (ALLOPURINOL) [Concomitant]
  4. HYZAAR [Concomitant]
  5. STRONTIUM RANELATE(TABLETS) (STRONTIUM RANELATE) [Concomitant]
  6. VITAMIN D3 (TABLETS) (COLECALCIFEROL) [Concomitant]

REACTIONS (1)
  - DIVERTICULUM INTESTINAL HAEMORRHAGIC [None]
